FAERS Safety Report 24917839 (Version 1)
Quarter: 2025Q1

REPORT INFORMATION
  Report Type: Spontaneous
  Country: CN (occurrence: CN)
  Receive Date: 20250203
  Receipt Date: 20250203
  Transmission Date: 20250409
  Serious: Yes (Other)
  Sender: MERCK
  Company Number: CN-009507513-2501CHN009195

PATIENT
  Age: 75 Year
  Sex: Male

DRUGS (8)
  1. IMIPENEM AND CILASTATIN [Suspect]
     Active Substance: CILASTATIN SODIUM\IMIPENEM
     Indication: Pneumonia
     Dosage: 1 GRAM, EVERY 8 HOURS
     Route: 041
     Dates: start: 201505, end: 2015
  2. CEFOPERAZONE SODIUM;TAZOBACTAM [Concomitant]
     Indication: Pneumonia
     Dates: start: 20150525, end: 20150527
  3. AMBROXOL HYDROCHLORIDE [Concomitant]
     Active Substance: AMBROXOL HYDROCHLORIDE
     Indication: Productive cough
     Dates: start: 20150525
  4. OXIRACETAM [Concomitant]
     Active Substance: OXIRACETAM
     Indication: Cerebral infarction
     Dates: start: 20150525
  5. ALPROSTADIL [Concomitant]
     Active Substance: ALPROSTADIL
     Indication: Cerebral infarction
     Dates: start: 20150525
  6. OMEPRAZOLE [Concomitant]
     Active Substance: OMEPRAZOLE
     Indication: Antacid therapy
     Dates: start: 20150525
  7. OMEPRAZOLE [Concomitant]
     Active Substance: OMEPRAZOLE
     Indication: Abdominal discomfort
  8. OLANZAPINE [Concomitant]
     Active Substance: OLANZAPINE
     Indication: Agitation
     Dates: start: 20150525

REACTIONS (1)
  - Epilepsy [Recovered/Resolved]

NARRATIVE: CASE EVENT DATE: 20150501
